FAERS Safety Report 24382866 (Version 5)
Quarter: 2025Q4

REPORT INFORMATION
  Report Type: Spontaneous
  Country: US (occurrence: US)
  Receive Date: 20241001
  Receipt Date: 20251026
  Transmission Date: 20260117
  Serious: No
  Sender: TRAVERE THERAPEUTICS
  Company Number: US-TRAVERE-2024TVT00959

PATIENT
  Age: 33 Year
  Sex: Male

DRUGS (5)
  1. FILSPARI [Suspect]
     Active Substance: SPARSENTAN
     Indication: Chronic kidney disease
     Dosage: THERAPY START DATE: 25-SEP-2024
     Route: 048
  2. FILSPARI [Suspect]
     Active Substance: SPARSENTAN
     Indication: Kidney transplant rejection
     Route: 048
  3. FILSPARI [Suspect]
     Active Substance: SPARSENTAN
     Indication: Renal transplant
     Dosage: RESTART
     Route: 048
  4. FILSPARI [Suspect]
     Active Substance: SPARSENTAN
     Indication: Drug therapy
  5. FILSPARI [Suspect]
     Active Substance: SPARSENTAN
     Indication: IgA nephropathy

REACTIONS (2)
  - Liver function test increased [Recovered/Resolved]
  - Blood potassium increased [Recovering/Resolving]
